FAERS Safety Report 11820934 (Version 4)
Quarter: 2018Q4

REPORT INFORMATION
  Report Type: Spontaneous
  Country: US (occurrence: US)
  Receive Date: 20151210
  Receipt Date: 20181120
  Transmission Date: 20190204
  Serious: No
  Sender: FDA-Public Use
  Company Number: US-JNJFOC-20140805729

PATIENT
  Age: 54 Year
  Sex: Male

DRUGS (10)
  1. PRILOSEC [Concomitant]
     Active Substance: OMEPRAZOLE MAGNESIUM
  2. LIDODERM [Concomitant]
     Active Substance: LIDOCAINE
  3. FLOVENT [Concomitant]
     Active Substance: FLUTICASONE PROPIONATE
  4. LORATADINE. [Concomitant]
     Active Substance: LORATADINE
  5. IMBRUVICA [Suspect]
     Active Substance: IBRUTINIB
     Indication: CHRONIC LYMPHOCYTIC LEUKAEMIA
     Route: 048
     Dates: start: 20160402
  6. LYRICA [Concomitant]
     Active Substance: PREGABALIN
  7. PROVENTIL [Concomitant]
     Active Substance: ALBUTEROL
  8. IMBRUVICA [Suspect]
     Active Substance: IBRUTINIB
     Indication: CHRONIC LYMPHOCYTIC LEUKAEMIA
     Route: 048
     Dates: start: 20140302
  9. GABAPENTIN. [Concomitant]
     Active Substance: GABAPENTIN
  10. MOTRIN [Concomitant]
     Active Substance: IBUPROFEN

REACTIONS (10)
  - Asthenia [Recovering/Resolving]
  - Muscle spasms [Not Recovered/Not Resolved]
  - Throat irritation [Not Recovered/Not Resolved]
  - Cough [Not Recovered/Not Resolved]
  - White blood cell count increased [Recovering/Resolving]
  - Joint swelling [Unknown]
  - Foreign body in respiratory tract [Unknown]
  - Arthralgia [Not Recovered/Not Resolved]
  - Bronchitis [Recovering/Resolving]
  - Malaise [Not Recovered/Not Resolved]

NARRATIVE: CASE EVENT DATE: 2014
